FAERS Safety Report 7623346-2 (Version None)
Quarter: 2011Q3

REPORT INFORMATION
  Report Type: 
  Country: None (occurrence: None)
  Receive Date: 20110720
  Receipt Date: 20110705
  Transmission Date: 20111222
  Serious: Yes (Hospitalization)
  Sender: FDA-Public Use
  Company Number: CZ-SANOFI-AVENTIS-2011SA044443

PATIENT
  Age: 78 Year
  Sex: Male
  Weight: 85 kg

DRUGS (6)
  1. DRONEDARONE HCL [Suspect]
     Indication: ATRIAL FIBRILLATION
     Route: 048
     Dates: start: 20110322
  2. THIAZIDES [Concomitant]
  3. CILAZAPRIL [Concomitant]
  4. DIAPREL [Concomitant]
  5. WARFARIN SODIUM [Concomitant]
  6. ROSUVASTATIN [Concomitant]

REACTIONS (1)
  - GASTROINTESTINAL ULCER HAEMORRHAGE [None]
